FAERS Safety Report 6690247-6 (Version None)
Quarter: 2010Q2

REPORT INFORMATION
  Report Type: 
  Country: None (occurrence: None)
  Receive Date: 20100421
  Receipt Date: 20100412
  Transmission Date: 20101027
  Serious: Yes (Life-Threatening, Other)
  Sender: FDA-Public Use
  Company Number: JP-ROCHE-697584

PATIENT
  Sex: Female

DRUGS (4)
  1. HERCEPTIN [Suspect]
     Route: 041
     Dates: start: 20090801, end: 20100216
  2. FARMORUBICIN [Suspect]
     Dosage: UNCERTAIN DOSAGE AND FIVE COURSES.
     Route: 041
     Dates: start: 20090401
  3. FLUOROURACIL [Concomitant]
     Dosage: UNCERTAIN DOSAGE AND FIVE COURSES
     Route: 041
     Dates: start: 20090401
  4. ENDOXAN [Concomitant]
     Dosage: UNCERTAIN DOSAGE AND FIVE COURSES
     Route: 041
     Dates: start: 20090401

REACTIONS (2)
  - EJECTION FRACTION DECREASED [None]
  - VENTRICULAR TACHYCARDIA [None]
